FAERS Safety Report 5285039-9 (Version None)
Quarter: 2007Q2

REPORT INFORMATION
  Report Type: 
  Country: None (occurrence: None)
  Receive Date: 20070403
  Receipt Date: 20070312
  Transmission Date: 20071010
  Serious: Yes (Hospitalization)
  Sender: FDA-Public Use
  Company Number: US-SANOFI-SYNTHELABO-A03200702480

PATIENT
  Sex: Female

DRUGS (1)
  1. AMBIEN [Suspect]
     Indication: INSOMNIA
     Dosage: UNK
     Route: 048
     Dates: start: 20030601, end: 20040201

REACTIONS (7)
  - AMNESIA [None]
  - DEPRESSION [None]
  - DIABETES MELLITUS NON-INSULIN-DEPENDENT [None]
  - EATING DISORDER [None]
  - HYPERTENSION [None]
  - SLEEP WALKING [None]
  - WEIGHT INCREASED [None]
